FAERS Safety Report 10156723 (Version 1)
Quarter: 2014Q2

REPORT INFORMATION
  Report Type: Spontaneous
  Country: US (occurrence: None)
  Receive Date: 20140506
  Receipt Date: 20140506
  Transmission Date: 20141212
  Serious: Yes (Disabling)
  Sender: FDA-Public Use
  Company Number: None

PATIENT
  Age: 54 Year
  Sex: Male
  Weight: 79.38 kg

DRUGS (1)
  1. VILAZODONE HYDROCHLORIDE [Suspect]
     Indication: DEPRESSION
     Dosage: 1 PILL
     Route: 048
     Dates: start: 20111006, end: 20111008

REACTIONS (2)
  - Tinnitus [None]
  - Drug interaction [None]
